FAERS Safety Report 16185717 (Version 1)
Quarter: 2019Q2

REPORT INFORMATION
  Report Type: Spontaneous
  Country: BR (occurrence: BR)
  Receive Date: 20190411
  Receipt Date: 20190411
  Transmission Date: 20190711
  Serious: Yes (Other)
  Sender: FDA-Public Use
  Company Number: BR-BAYER-2019-070611

PATIENT
  Age: 37 Year
  Sex: Female

DRUGS (5)
  1. MIRENA [Suspect]
     Active Substance: LEVONORGESTREL
     Indication: ENDOMETRIOSIS
  2. MIRENA [Suspect]
     Active Substance: LEVONORGESTREL
     Indication: ENDOMETRIOSIS
     Dosage: 20 MCG/24HR
     Route: 015
     Dates: start: 20140411
  3. MIRENA [Suspect]
     Active Substance: LEVONORGESTREL
     Indication: ENDOMETRIOSIS
     Dosage: 20 MCG/24HR, CONT
     Route: 015
     Dates: start: 199909, end: 2014
  4. ALLURENE [Suspect]
     Active Substance: DIENOGEST
     Indication: VAGINAL HAEMORRHAGE
     Dosage: 1 DF, QD
     Route: 048
     Dates: start: 201404, end: 201407
  5. RIVOTRIL [Concomitant]
     Active Substance: CLONAZEPAM
     Indication: PANIC REACTION
     Dosage: 1 DF, QD
     Route: 048
     Dates: start: 2008

REACTIONS (15)
  - Depression [None]
  - Migraine [Not Recovered/Not Resolved]
  - Off label use of device [None]
  - Internal haemorrhage [Recovered/Resolved]
  - Vaginal haemorrhage [Not Recovered/Not Resolved]
  - Panic reaction [None]
  - Product use in unapproved indication [None]
  - Amenorrhoea [Not Recovered/Not Resolved]
  - Premenstrual pain [Not Recovered/Not Resolved]
  - Ectopic pregnancy with contraceptive device [Recovered/Resolved]
  - Abdominal pain lower [Recovered/Resolved]
  - Device ineffective [None]
  - Premenstrual headache [Not Recovered/Not Resolved]
  - Nausea [Not Recovered/Not Resolved]
  - Device use issue [None]

NARRATIVE: CASE EVENT DATE: 2014
